FAERS Safety Report 20182019 (Version 1)
Quarter: 2021Q4

REPORT INFORMATION
  Report Type: Spontaneous
  Country: US (occurrence: US)
  Receive Date: 20211214
  Receipt Date: 20211214
  Transmission Date: 20220303
  Serious: Yes (Death, Hospitalization)
  Sender: FDA-Public Use
  Company Number: US-MYLANLABS-2021M1092646

PATIENT
  Age: 36 Year
  Sex: Male

DRUGS (4)
  1. EPINEPHRINE [Suspect]
     Active Substance: EPINEPHRINE
     Indication: Cardiac arrest
     Dosage: BOLUS OF EPINEPHRINE
     Route: 065
  2. MAGNESIUM [Suspect]
     Active Substance: MAGNESIUM
     Indication: Cardiac arrest
     Dosage: UNK
     Route: 065
  3. SODIUM BICARBONATE [Suspect]
     Active Substance: SODIUM BICARBONATE
     Indication: Cardiac arrest
     Dosage: UNK
     Route: 065
  4. CALCIUM [Suspect]
     Active Substance: CALCIUM
     Indication: Cardiac arrest
     Dosage: UNK
     Route: 065

REACTIONS (1)
  - Drug ineffective [Fatal]
